FAERS Safety Report 13377094 (Version 1)
Quarter: 2017Q1

REPORT INFORMATION
  Report Type: Spontaneous
  Country: US (occurrence: US)
  Receive Date: 20170328
  Receipt Date: 20170328
  Transmission Date: 20170429
  Serious: Yes (Hospitalization)
  Sender: FDA-Public Use
  Company Number: US-REGENERON PHARMACEUTICALS, INC.-2017-13440

PATIENT

DRUGS (1)
  1. EYLEA [Suspect]
     Active Substance: AFLIBERCEPT
     Indication: VISUAL ACUITY REDUCED
     Dosage: RIGHT EYE (OD), MONTHLY
     Route: 031

REACTIONS (7)
  - Malaise [Unknown]
  - Visual acuity reduced [Unknown]
  - Weight decreased [Unknown]
  - Off label use [Unknown]
  - Injection site pain [Recovered/Resolved]
  - Dehydration [Unknown]
  - Urinary tract infection [Recovered/Resolved]

NARRATIVE: CASE EVENT DATE: 2017
